FAERS Safety Report 9900514 (Version 1)
Quarter: 2014Q1

REPORT INFORMATION
  Report Type: Spontaneous
  Country: US (occurrence: US)
  Receive Date: 20140217
  Receipt Date: 20140217
  Transmission Date: 20141002
  Serious: No
  Sender: FDA-Public Use
  Company Number: US-BIOGENIDEC-2014BI014085

PATIENT
  Age: 39 Year
  Sex: Female

DRUGS (1)
  1. TYSABRI [Suspect]
     Indication: MULTIPLE SCLEROSIS
     Route: 042
     Dates: start: 20110331, end: 20131226

REACTIONS (10)
  - Decreased immune responsiveness [Recovered/Resolved]
  - Hypersomnia [Recovered/Resolved]
  - Drug withdrawal syndrome [Recovered/Resolved]
  - Loss of control of legs [Recovered/Resolved]
  - Feeling of body temperature change [Recovered/Resolved]
  - Paraesthesia [Recovered/Resolved]
  - Musculoskeletal disorder [Recovered/Resolved]
  - Fatigue [Recovered/Resolved]
  - Nasopharyngitis [Recovered/Resolved]
  - Multiple sclerosis [Recovered/Resolved]
